FAERS Safety Report 4445246-1 (Version None)
Quarter: 2004Q3

REPORT INFORMATION
  Report Type: 
  Country: None (occurrence: None)
  Receive Date: 20040730
  Receipt Date: 20040610
  Transmission Date: 20050211
  Serious: No
  Sender: FDA-Public Use
  Company Number: PHEH2004US05516

PATIENT
  Age: 61 Year
  Sex: Female
  Weight: 73.5 kg

DRUGS (1)
  1. GLEEVEC [Suspect]
     Indication: CHRONIC MYELOID LEUKAEMIA
     Dosage: 200 MG, QD, ORAL
     Route: 048
     Dates: start: 20040101

REACTIONS (5)
  - CHROMOSOME ANALYSIS ABNORMAL [None]
  - EYE SWELLING [None]
  - EYELID OEDEMA [None]
  - MUSCLE CRAMP [None]
  - NAUSEA [None]
